FAERS Safety Report 6038093-0 (Version None)
Quarter: 2009Q1

REPORT INFORMATION
  Report Type: 
  Country: None (occurrence: None)
  Receive Date: 20090115
  Receipt Date: 20090106
  Transmission Date: 20090719
  Serious: Yes (Hospitalization)
  Sender: FDA-Public Use
  Company Number: US-BIOGENIDEC-2008BI034112

PATIENT
  Age: 39 Year
  Sex: Female
  Weight: 45 kg

DRUGS (3)
  1. TYSABRI [Suspect]
     Indication: MULTIPLE SCLEROSIS
     Route: 042
     Dates: start: 20071008, end: 20080922
  2. DEPAKOTE [Concomitant]
     Indication: CONVULSION
     Dates: start: 20020101
  3. DEPAKOTE [Concomitant]
     Indication: STRESS
     Dates: start: 20020101

REACTIONS (10)
  - CONTUSION [None]
  - CONVULSION [None]
  - CORONARY ARTERY OCCLUSION [None]
  - FALL [None]
  - INCOHERENT [None]
  - LOSS OF CONSCIOUSNESS [None]
  - MULTIPLE SCLEROSIS [None]
  - STAPHYLOCOCCAL SKIN INFECTION [None]
  - STRESS [None]
  - SWELLING [None]
